FAERS Safety Report 4996242-7 (Version None)
Quarter: 2006Q2

REPORT INFORMATION
  Report Type: 
  Country: None (occurrence: None)
  Receive Date: 20060509
  Receipt Date: 20050419
  Transmission Date: 20061013
  Serious: Yes (Other)
  Sender: FDA-Public Use
  Company Number: PHNR2005AU00790

PATIENT
  Age: 64 Year
  Sex: Male

DRUGS (7)
  1. PREDNISOLONE [Concomitant]
  2. CYCLOSPORINE [Concomitant]
  3. ITRACONAZOLE [Concomitant]
  4. SULFAMETHOXAZOLE/TRIMETHOPRIM ^DAK^ [Concomitant]
  5. RANITIDINE [Concomitant]
  6. PENICILLIN [Concomitant]
  7. AREDIA [Suspect]
     Indication: MULTIPLE MYELOMA
     Dosage: 90 MG MONTHLY
     Route: 042

REACTIONS (6)
  - BONE DEBRIDEMENT [None]
  - OSTEONECROSIS [None]
  - PRIMARY SEQUESTRUM [None]
  - SEQUESTRECTOMY [None]
  - TOOTH EXTRACTION [None]
  - ULCER [None]
